FAERS Safety Report 6971943-X (Version None)
Quarter: 2010Q3

REPORT INFORMATION
  Report Type: 
  Country: None (occurrence: None)
  Receive Date: 20100908
  Receipt Date: 20100908
  Transmission Date: 20110219
  Serious: Yes (Disabling, Other)
  Sender: FDA-Public Use
  Company Number: None

PATIENT
  Age: 30 Year
  Sex: Female
  Weight: 72.7 kg

DRUGS (4)
  1. MOBAN [Suspect]
     Indication: DEPRESSION
     Dosage: 25-50MG 1-2 TABS QAM/PRN 047; 125 MG 4-5 TABS QPM  047
     Dates: start: 20070101, end: 20070401
  2. MOBAN [Suspect]
     Indication: PSYCHOTIC DISORDER
     Dosage: 25-50MG 1-2 TABS QAM/PRN 047; 125 MG 4-5 TABS QPM  047
     Dates: start: 20070101, end: 20070401
  3. PROZAC [Concomitant]
  4. ALBUTEROL [Concomitant]

REACTIONS (15)
  - ASTHENIA [None]
  - ATTENTION DEFICIT/HYPERACTIVITY DISORDER [None]
  - COGNITIVE DISORDER [None]
  - DISCOMFORT [None]
  - DYSKINESIA [None]
  - DYSTONIA [None]
  - IMPAIRED SELF-CARE [None]
  - LEARNING DISABILITY [None]
  - MEMORY IMPAIRMENT [None]
  - MUSCLE RIGIDITY [None]
  - MUSCULOSKELETAL STIFFNESS [None]
  - PARKINSONISM [None]
  - SPEECH DISORDER [None]
  - TARDIVE DYSKINESIA [None]
  - VISION BLURRED [None]
